FAERS Safety Report 19893976 (Version 1)
Quarter: 2021Q3

REPORT INFORMATION
  Report Type: Spontaneous
  Country: CN (occurrence: CN)
  Receive Date: 20210928
  Receipt Date: 20210928
  Transmission Date: 20211014
  Serious: Yes (Death, Other)
  Sender: FDA-Public Use
  Company Number: CN-PFIZER INC-202101228070

PATIENT
  Age: 44 Year
  Sex: Female

DRUGS (4)
  1. METHOTREXATE SODIUM. [Suspect]
     Active Substance: METHOTREXATE SODIUM
     Indication: NEOPLASM RECURRENCE
  2. METHOTREXATE SODIUM. [Suspect]
     Active Substance: METHOTREXATE SODIUM
     Indication: CENTRAL NERVOUS SYSTEM LYMPHOMA
     Dosage: UNK, 4 CYCLES OF MTX 3.0 G/M2, DAY 1, 21 DAYS AS A CYCLE
     Dates: start: 201805, end: 201807
  3. CYTARABINE. [Suspect]
     Active Substance: CYTARABINE
     Indication: NEOPLASM RECURRENCE
  4. CYTARABINE. [Suspect]
     Active Substance: CYTARABINE
     Indication: CENTRAL NERVOUS SYSTEM LYMPHOMA
     Dosage: UNK, 4 CYCLES OF 2 G/M2, EVERY 12 H, DAYS 2 AND 3; 21 DAYS AS A CYCLE
     Dates: start: 201805, end: 201807

REACTIONS (6)
  - Neoplasm progression [Unknown]
  - Leukopenia [Unknown]
  - Off label use [Unknown]
  - Myelosuppression [Unknown]
  - Anaemia [Unknown]
  - Thrombocytopenia [Unknown]
